FAERS Safety Report 7897157-7 (Version None)
Quarter: 2011Q4

REPORT INFORMATION
  Report Type: 
  Country: None (occurrence: None)
  Receive Date: 20111107
  Receipt Date: 20111025
  Transmission Date: 20120403
  Serious: Yes (Death)
  Sender: FDA-Public Use
  Company Number: CA-ELI_LILLY_AND_COMPANY-CA201110006610

PATIENT
  Sex: Male

DRUGS (9)
  1. HALOPERIDOL [Concomitant]
  2. ZYPREXA [Suspect]
     Dosage: 5 MG, UNK
  3. LOXAPINE [Concomitant]
  4. ZYPREXA [Suspect]
     Dosage: 10 MG, UNK
  5. ALTACE [Concomitant]
  6. ZYPREXA [Suspect]
     Dosage: 2.5 MG, UNK
  7. ATIVAN [Concomitant]
  8. ZYPREXA [Suspect]
     Dosage: 7.5 MG, UNK
  9. TRAZODONE HYDROCHLORIDE [Concomitant]

REACTIONS (3)
  - DEMENTIA [None]
  - DEATH [None]
  - DIABETES MELLITUS [None]
